FAERS Safety Report 5533144-1 (Version None)
Quarter: 2007Q4

REPORT INFORMATION
  Report Type: 
  Country: None (occurrence: None)
  Receive Date: 20071129
  Receipt Date: 20071129
  Transmission Date: 20080405
  Serious: Yes (Hospitalization)
  Sender: FDA-Public Use
  Company Number: None

PATIENT
  Sex: Female
  Weight: 49.9 kg

DRUGS (3)
  1. CYTARABINE [Suspect]
     Dosage: 572 MG
     Dates: start: 20071123
  2. DAUNORUBICIN HCL [Suspect]
     Dosage: 387 MG
  3. ETOPOSIDE [Suspect]
     Dosage: 429 MG

REACTIONS (9)
  - ABDOMINAL PAIN UPPER [None]
  - BLOOD AMYLASE INCREASED [None]
  - BLOOD BILIRUBIN INCREASED [None]
  - CHILLS [None]
  - DIARRHOEA [None]
  - EPIGASTRIC DISCOMFORT [None]
  - FAECES DISCOLOURED [None]
  - ILL-DEFINED DISORDER [None]
  - PYREXIA [None]
